FAERS Safety Report 8066610-8 (Version None)
Quarter: 2012Q1

REPORT INFORMATION
  Report Type: 
  Country: None (occurrence: None)
  Receive Date: 20120124
  Receipt Date: 20120112
  Transmission Date: 20120608
  Serious: Yes (Other)
  Sender: FDA-Public Use
  Company Number: PHHY2012PL004191

PATIENT
  Age: 60 Year
  Sex: Male

DRUGS (5)
  1. PREDNISONE [Concomitant]
     Dosage: 5 MG,
  2. PREDNISONE [Concomitant]
     Dosage: 25 MG,
  3. CERTICAN [Suspect]
     Indication: PROPHYLAXIS AGAINST TRANSPLANT REJECTION
     Dosage: 0.5 MG, UNK
  4. CYCLOSPORINE [Suspect]
     Dosage: 150 MG,
  5. CYCLOSPORINE [Suspect]
     Indication: RENAL TRANSPLANT
     Dosage: 400 MG,

REACTIONS (2)
  - RENAL IMPAIRMENT [None]
  - SKIN NECROSIS [None]
